FAERS Safety Report 21418205 (Version 1)
Quarter: 2022Q4

REPORT INFORMATION
  Report Type: Spontaneous
  Country: US (occurrence: None)
  Receive Date: 20221005
  Receipt Date: 20221005
  Transmission Date: 20230113
  Serious: Yes (Hospitalization)
  Sender: FDA-Public Use
  Company Number: None

PATIENT
  Age: 62 Year
  Sex: Female

DRUGS (1)
  1. CAPECITABINE [Suspect]
     Active Substance: CAPECITABINE
     Indication: Gallbladder cancer
     Dosage: FREQUENCY : TWICE A DAY;?
     Route: 048
     Dates: start: 202208, end: 20220914

REACTIONS (12)
  - Diarrhoea [None]
  - Palmar-plantar erythrodysaesthesia syndrome [None]
  - Stomatitis [None]
  - Alopecia [None]
  - Abdominal pain [None]
  - Abdominal distension [None]
  - Blood potassium decreased [None]
  - Blood magnesium decreased [None]
  - Gastrointestinal inflammation [None]
  - Gastrointestinal obstruction [None]
  - Gastrooesophageal reflux disease [None]
  - Fatigue [None]

NARRATIVE: CASE EVENT DATE: 20220914
